FAERS Safety Report 24219781 (Version 1)
Quarter: 2024Q3

REPORT INFORMATION
  Report Type: Spontaneous
  Country: CA (occurrence: CA)
  Receive Date: 20240817
  Receipt Date: 20240817
  Transmission Date: 20241017
  Serious: Yes (Other)
  Sender: SANOFI AVENTIS
  Company Number: CA-SA-2024SA239850

PATIENT
  Age: 67 Year
  Sex: Male
  Weight: 113 kg

DRUGS (11)
  1. MYOZYME [Suspect]
     Active Substance: ALGLUCOSIDASE ALFA
     Indication: Glycogen storage disease type II
     Dosage: 2400 MG, QOW
     Route: 041
     Dates: start: 201001
  2. ALLOPURINOL [Concomitant]
     Active Substance: ALLOPURINOL
     Indication: Gout
     Dosage: 300 MG, QD
  3. ALLOPURINOL [Concomitant]
     Active Substance: ALLOPURINOL
     Dosage: 100 MG, QD
  4. EZETIMIBE [Concomitant]
     Active Substance: EZETIMIBE
     Indication: Blood cholesterol abnormal
     Dosage: 10 MG, QD
  5. PRAVASTATIN [Concomitant]
     Active Substance: PRAVASTATIN
     Indication: Hypertension
     Dosage: 20 MG, QD
  6. TRESIBA [Concomitant]
     Active Substance: INSULIN DEGLUDEC
     Dosage: 84 U AM
  7. HUMALOG [Concomitant]
     Active Substance: INSULIN LISPRO
     Indication: Diabetes mellitus
     Dosage: 18 U, HS
  8. CREATINE [Concomitant]
     Active Substance: CREATINE
     Dosage: 3500 MG, QD
  9. CREATINE [Concomitant]
     Active Substance: CREATINE
     Dosage: 10 G, QD
     Dates: start: 2014
  10. VITAMINS NOS [Concomitant]
     Active Substance: VITAMINS
     Dosage: 1 DF
  11. VITAMIN D NOS [Concomitant]
     Active Substance: CHOLECALCIFEROL\ERGOCALCIFEROL
     Dosage: UNK UNK, QD

REACTIONS (4)
  - Syncope [Unknown]
  - Malaise [Unknown]
  - Urinary tract infection [Unknown]
  - Heart rate decreased [Unknown]

NARRATIVE: CASE EVENT DATE: 20240807
